FAERS Safety Report 4485829-6 (Version None)
Quarter: 2004Q3

REPORT INFORMATION
  Report Type: 
  Country: None (occurrence: None)
  Receive Date: 20040921
  Receipt Date: 20031104
  Transmission Date: 20050211
  Serious: Yes (Death)
  Sender: FDA-Public Use
  Company Number: 163-20785-03110055

PATIENT
  Age: 71 Year
  Sex: Male

DRUGS (4)
  1. THALOMID [Suspect]
     Indication: PANCREATIC CARCINOMA METASTATIC
     Dosage: 200-300 MG, Q.H.S., ORAL
     Route: 048
     Dates: start: 20030814, end: 20030820
  2. THALOMID [Suspect]
     Indication: PANCREATIC CARCINOMA METASTATIC
     Dosage: 200-300 MG, Q.H.S., ORAL
     Route: 048
     Dates: start: 20030821, end: 20031008
  3. CELEBREX [Suspect]
     Indication: PANCREATIC CARCINOMA METASTATIC
     Dates: start: 20030814
  4. GEMZAR [Suspect]
     Indication: PANCREATIC CARCINOMA METASTATIC
     Dates: start: 20030827

REACTIONS (2)
  - DEATH [None]
  - DISEASE PROGRESSION [None]
